FAERS Safety Report 18968065 (Version 1)
Quarter: 2021Q1

REPORT INFORMATION
  Report Type: Spontaneous
  Country: US (occurrence: US)
  Receive Date: 20210303
  Receipt Date: 20210303
  Transmission Date: 20210420
  Serious: Yes (Hospitalization)
  Sender: FDA-Public Use
  Company Number: None

PATIENT
  Age: 73 Year
  Sex: Male
  Weight: 235 kg

DRUGS (1)
  1. LISINOPRIL (LISINOPRIL 40MG TAB) [Suspect]
     Active Substance: LISINOPRIL
     Indication: HYPERTENSION
     Dosage: OTHER FREQUENCY: 40 MG AM; PO?
     Route: 048
     Dates: start: 20180619, end: 20210114

REACTIONS (1)
  - Angioedema [None]

NARRATIVE: CASE EVENT DATE: 20210114
